FAERS Safety Report 19995288 (Version 9)
Quarter: 2022Q1

REPORT INFORMATION
  Report Type: Report from Study
  Country: ES (occurrence: ES)
  Receive Date: 20211026
  Receipt Date: 20220217
  Transmission Date: 20220423
  Serious: Yes (Life-Threatening, Hospitalization, Other)
  Sender: FDA-Public Use
  Company Number: ES-ABBVIE-21K-144-4134333-00

PATIENT
  Age: 17 Year
  Sex: Male
  Weight: 53.5 kg

DRUGS (11)
  1. HUMIRA [Suspect]
     Active Substance: ADALIMUMAB
     Indication: Crohn^s disease
     Route: 058
     Dates: start: 20171106, end: 20180626
  2. HUMIRA [Suspect]
     Active Substance: ADALIMUMAB
     Dosage: TWO WEEKS
     Route: 058
     Dates: start: 20180627, end: 20180812
  3. HUMIRA [Suspect]
     Active Substance: ADALIMUMAB
     Route: 058
     Dates: start: 20180813, end: 20181217
  4. HUMIRA [Suspect]
     Active Substance: ADALIMUMAB
     Dosage: TWO WEEKS
     Route: 058
     Dates: start: 20181218, end: 20181227
  5. HUMIRA [Suspect]
     Active Substance: ADALIMUMAB
     Route: 058
     Dates: start: 20181228, end: 20190904
  6. HUMIRA [Suspect]
     Active Substance: ADALIMUMAB
     Dosage: THREE WEEKS
     Route: 058
     Dates: start: 20190905, end: 20211005
  7. HUMIRA [Suspect]
     Active Substance: ADALIMUMAB
     Dosage: OTHER
     Route: 058
     Dates: start: 20211006, end: 20211025
  8. AZATHIOPRINE [Suspect]
     Active Substance: AZATHIOPRINE
     Indication: Crohn^s disease
     Route: 048
     Dates: start: 20170305, end: 20180508
  9. METHOTREXATE [Suspect]
     Active Substance: METHOTREXATE
     Indication: Crohn^s disease
     Route: 048
     Dates: start: 20180710, end: 20180724
  10. MASTICAL D [Concomitant]
     Indication: Prophylaxis
     Dosage: 5OO MG CALCIO?400 UI VITAMINA D
     Route: 048
     Dates: start: 20170222
  11. METRONIDAZOLE [Concomitant]
     Active Substance: METRONIDAZOLE
     Indication: Gastrointestinal infection
     Route: 048
     Dates: start: 20181129

REACTIONS (2)
  - Intestinal obstruction [Recovered/Resolved]
  - Post procedural haemorrhage [Recovered/Resolved]

NARRATIVE: CASE EVENT DATE: 20211006
